FAERS Safety Report 10663039 (Version 1)
Quarter: 2014Q4

REPORT INFORMATION
  Report Type: Spontaneous
  Country: GB (occurrence: GB)
  Receive Date: 20141218
  Receipt Date: 20141218
  Transmission Date: 20150529
  Serious: Yes (Life-Threatening, Other)
  Sender: FDA-Public Use
  Company Number: GB-BRISTOL-MYERS SQUIBB COMPANY-BMS-2014-000722

PATIENT
  Age: 45 Year
  Sex: Male

DRUGS (6)
  1. NRG /00203501/ [Interacting]
     Active Substance: DEXTROSE
     Indication: PRODUCT USED FOR UNKNOWN INDICATION
     Dosage: UNK
     Route: 065
     Dates: start: 2014
  2. DIAZEPAM. [Concomitant]
     Active Substance: DIAZEPAM
     Indication: PRODUCT USED FOR UNKNOWN INDICATION
     Route: 065
  3. ARIPIPRAZOLE. [Suspect]
     Active Substance: ARIPIPRAZOLE
     Indication: SCHIZOPHRENIA, PARANOID TYPE
     Dosage: 30 MG, QD
     Route: 065
     Dates: start: 2014
  4. ARIPIPRAZOLE. [Interacting]
     Active Substance: ARIPIPRAZOLE
     Indication: AFFECTIVE DISORDER
  5. SODIUM VALPROATE [Concomitant]
     Active Substance: VALPROATE SODIUM
     Indication: PRODUCT USED FOR UNKNOWN INDICATION
     Route: 065
  6. ZOPICLONE [Concomitant]
     Active Substance: ZOPICLONE
     Indication: PRODUCT USED FOR UNKNOWN INDICATION
     Route: 065

REACTIONS (10)
  - Aspartate aminotransferase increased [Unknown]
  - Joint dislocation [None]
  - Hyponatraemia [None]
  - Ecchymosis [None]
  - Sinus tachycardia [Unknown]
  - Drug interaction [Unknown]
  - Agitation [Unknown]
  - Electrocardiogram QT prolonged [Unknown]
  - Fall [None]
  - Acute kidney injury [Recovered/Resolved]
